FAERS Safety Report 7956239-1 (Version None)
Quarter: 2011Q4

REPORT INFORMATION
  Report Type: 
  Country: None (occurrence: None)
  Receive Date: 20111205
  Receipt Date: 20111123
  Transmission Date: 20120403
  Serious: Yes (Death)
  Sender: FDA-Public Use
  Company Number: GB-JNJFOC-20111110146

PATIENT
  Age: 66 Year
  Sex: Female

DRUGS (1)
  1. REMICADE [Suspect]
     Indication: RHEUMATOID ARTHRITIS
     Route: 042
     Dates: start: 20020614, end: 20060908

REACTIONS (3)
  - RHEUMATOID ARTHRITIS [None]
  - INTERSTITIAL LUNG DISEASE [None]
  - OSTEOPOROSIS [None]
